FAERS Safety Report 20937920 (Version 1)
Quarter: 2022Q2

REPORT INFORMATION
  Report Type: Spontaneous
  Country: US (occurrence: US)
  Receive Date: 20220609
  Receipt Date: 20220609
  Transmission Date: 20220721
  Serious: Yes (Other)
  Sender: FDA-Public Use
  Company Number: US-MYLANLABS-2022M1042684

PATIENT
  Age: 20 Year
  Sex: Male

DRUGS (3)
  1. LAMOTRIGINE [Suspect]
     Active Substance: LAMOTRIGINE
     Indication: Illusion
     Dosage: 100 MILLIGRAM, BID
  2. CLONAZEPAM [Suspect]
     Active Substance: CLONAZEPAM
     Indication: Illusion
     Dosage: 1 MILLIGRAM, QD
  3. ROPINIROLE [Suspect]
     Active Substance: ROPINIROLE
     Indication: Illusion
     Dosage: 0.25 MILLIGRAM, TID

REACTIONS (3)
  - Feeling abnormal [Recovering/Resolving]
  - Mania [Recovering/Resolving]
  - Off label use [Unknown]
